FAERS Safety Report 4498834-0 (Version None)
Quarter: 2004Q4

REPORT INFORMATION
  Report Type: 
  Country: None (occurrence: None)
  Receive Date: 20041108
  Receipt Date: 20041014
  Transmission Date: 20050328
  Serious: Yes (Hospitalization)
  Sender: FDA-Public Use
  Company Number: ZONI002028

PATIENT
  Age: 4 Year
  Sex: Female

DRUGS (7)
  1. EXCEGRAN (ZONISAMIDE) [Suspect]
     Dosage: ORAL
     Route: 048
  2. DEPAKENE [Concomitant]
  3. CLONAZEPAM [Concomitant]
  4. L-CARNITINE [Concomitant]
  5. ERYTHROCIN [Concomitant]
  6. MUCOSAL (ACETYLCYSTEINE) [Concomitant]
  7. ENSURE LIQUID (ENSURE) [Concomitant]

REACTIONS (16)
  - ABDOMINAL DISTENSION [None]
  - ABDOMINAL MASS [None]
  - ABDOMINAL TENDERNESS [None]
  - CALCULUS URETERIC [None]
  - CARDIAC MURMUR [None]
  - HEART RATE INCREASED [None]
  - HYDRONEPHROSIS [None]
  - INFLAMMATION [None]
  - KIDNEY ENLARGEMENT [None]
  - LIP DRY [None]
  - NEPHROLITHIASIS [None]
  - PHARYNGEAL ERYTHEMA [None]
  - PYONEPHROSIS [None]
  - PYREXIA [None]
  - PYURIA [None]
  - VOMITING [None]
